FAERS Safety Report 6894429-X (Version None)
Quarter: 2010Q3

REPORT INFORMATION
  Report Type: 
  Country: None (occurrence: None)
  Receive Date: 20100802
  Receipt Date: 20100729
  Transmission Date: 20110219
  Serious: Yes (Death, Life-Threatening)
  Sender: FDA-Public Use
  Company Number: FR-WYE-G06423810

PATIENT
  Sex: Male
  Weight: 77 kg

DRUGS (7)
  1. GEMTUZUMAB OZOGAMICIN [Suspect]
     Dosage: 5 MG TOTAL DAILY
     Route: 042
     Dates: start: 20100629, end: 20100705
  2. DAUNORUBICIN HCL [Suspect]
     Dosage: 115 MG TOTAL DAILY
     Route: 042
     Dates: start: 20100629, end: 20100701
  3. FORTUM [Concomitant]
     Dosage: 2000 MG TOTAL DAILY
     Route: 042
     Dates: start: 20100705
  4. FLAGYL [Concomitant]
     Dosage: 500 MG TOTAL DAILY
     Route: 042
     Dates: start: 20100718
  5. VANCOMYCIN [Concomitant]
     Dosage: 3000 MG TOTAL DAILY
     Route: 042
     Dates: start: 20100709, end: 20100713
  6. CYTARABINE [Suspect]
     Dosage: 384 MG TOTAL DAILY
     Route: 042
     Dates: start: 20100629, end: 20100707
  7. VITAMIN K TAB [Concomitant]
     Dosage: 1 AMPULE DAILY
     Route: 042
     Dates: start: 20100718

REACTIONS (1)
  - HEPATOTOXICITY [None]
